FAERS Safety Report 25248997 (Version 3)
Quarter: 2025Q2

REPORT INFORMATION
  Report Type: Spontaneous
  Country: CN (occurrence: CN)
  Receive Date: 20250429
  Receipt Date: 20250519
  Transmission Date: 20250717
  Serious: Yes (Death, Hospitalization, Other)
  Sender: JOHNSON AND JOHNSON
  Company Number: CN-JNJFOC-20250431251

PATIENT
  Age: 4 Decade
  Sex: Female

DRUGS (4)
  1. INVEGA SUSTENNA [Suspect]
     Active Substance: PALIPERIDONE PALMITATE
     Indication: Schizophrenia
     Route: 030
     Dates: start: 20250402
  2. INVEGA SUSTENNA [Suspect]
     Active Substance: PALIPERIDONE PALMITATE
  3. INVEGA SUSTENNA [Suspect]
     Active Substance: PALIPERIDONE PALMITATE
  4. RISPERIDONE [Concomitant]
     Active Substance: RISPERIDONE
     Indication: Product used for unknown indication
     Route: 048
     Dates: end: 20250402

REACTIONS (10)
  - Cardiac arrest [Fatal]
  - Confusional state [Unknown]
  - Dyspnoea [Unknown]
  - Akathisia [Recovering/Resolving]
  - Extrapyramidal disorder [Recovering/Resolving]
  - Dysphagia [Recovering/Resolving]
  - Vision blurred [Unknown]
  - Vomiting [Unknown]
  - Chills [Unknown]
  - Discomfort [Not Recovered/Not Resolved]
